FAERS Safety Report 19757897 (Version 4)
Quarter: 2024Q1

REPORT INFORMATION
  Report Type: Report from Study
  Country: US (occurrence: US)
  Receive Date: 20210828
  Receipt Date: 20240226
  Transmission Date: 20240410
  Serious: Yes (Other)
  Sender: FDA-Public Use
  Company Number: US-SHIRE-US202022575

PATIENT
  Sex: Female

DRUGS (2)
  1. HUMAN IMMUNOGLOBULIN G [Suspect]
     Active Substance: HUMAN IMMUNOGLOBULIN G
     Indication: Immunodeficiency common variable
     Dosage: UNK
     Route: 042
  2. HUMAN IMMUNOGLOBULIN G [Suspect]
     Active Substance: HUMAN IMMUNOGLOBULIN G
     Indication: Primary immunodeficiency syndrome
     Dosage: UNK UNK, Q2WEEKS
     Route: 065

REACTIONS (13)
  - Rheumatoid arthritis [Unknown]
  - Autoimmune thyroiditis [Unknown]
  - Deep vein thrombosis [Unknown]
  - Lichen planus [Unknown]
  - Migraine [Unknown]
  - Meniscus injury [Unknown]
  - Thyroid disorder [Unknown]
  - Vitamin B12 increased [Unknown]
  - White blood cell count increased [Unknown]
  - Weight fluctuation [Unknown]
  - Immunoglobulins decreased [Unknown]
  - Oedema peripheral [Unknown]
  - Rash [Recovered/Resolved]
